FAERS Safety Report 9365071 (Version 5)
Quarter: 2013Q3

REPORT INFORMATION
  Report Type: Spontaneous
  Country: JP (occurrence: JP)
  Receive Date: 20130624
  Receipt Date: 20130905
  Transmission Date: 20140515
  Serious: Yes (Hospitalization)
  Sender: FDA-Public Use
  Company Number: JP-PFIZER INC-2013162456

PATIENT
  Age: 72 Year
  Sex: Female
  Weight: 60.9 kg

DRUGS (18)
  1. CELECOX [Suspect]
     Indication: BACK PAIN
     Dosage: 100 MG, 2X/DAY
     Route: 048
     Dates: start: 20130507, end: 20130508
  2. CELECOX [Suspect]
     Indication: FRACTURE PAIN
  3. CELECOX [Suspect]
     Indication: OSTEOPOROSIS
  4. MUCOSTA [Suspect]
     Indication: GASTRITIS PROPHYLAXIS
     Dosage: 100 MG, 2X/DAY
     Route: 048
     Dates: start: 20130507, end: 20130509
  5. BONALON [Suspect]
     Indication: OSTEOPOROSIS
     Dosage: 35 MG, 1X/DAY
     Route: 048
     Dates: start: 20130507, end: 20130508
  6. BONALON [Suspect]
     Indication: BACK PAIN
  7. ELCATONIN [Concomitant]
     Indication: OSTEOPOROSIS
     Dosage: 20 DF, 1X/DAY
     Dates: start: 20130305
  8. MICARDIS [Concomitant]
     Indication: HYPERTENSION
     Dosage: 20 MG, 1X/DAY
     Route: 048
     Dates: start: 20050612
  9. PARIET [Concomitant]
     Indication: GASTRIC ULCER
     Dosage: 10 MG, 1X/DAY
     Route: 048
     Dates: start: 20121225
  10. URSO [Concomitant]
     Indication: HEPATIC CIRRHOSIS
     Dosage: 200 MG, 3X/DAY
     Route: 048
     Dates: start: 20050612
  11. L-CARTIN [Concomitant]
     Indication: CARNITINE DEFICIENCY
     Dosage: 200 MG, 3X/DAY
     Route: 048
     Dates: start: 20120110
  12. LIVACT [Concomitant]
     Indication: HYPOALBUMINAEMIA
     Dosage: 4.15 G, 3X/DAY
     Route: 048
     Dates: start: 20080331
  13. BIOFERMIN [Concomitant]
     Indication: CONSTIPATION
     Dosage: 1 TABLET, 3X/DAY
     Route: 048
     Dates: start: 20120828
  14. CABAGIN [Concomitant]
     Indication: GASTRITIS
     Dosage: 2 G, 3X/DAY
     Route: 048
     Dates: start: 20130208
  15. FLUITRAN [Concomitant]
     Indication: HYPERTENSION
     Dosage: 1 MG, 1X/DAY
     Route: 048
     Dates: start: 20130430
  16. LUPRAC [Concomitant]
     Indication: OEDEMA DUE TO HEPATIC DISEASE
     Dosage: 4 MG, 1X/DAY
     Route: 048
     Dates: start: 20130430
  17. SHAKUYAKU-KANZO-TO [Concomitant]
     Indication: PAIN
     Dosage: 2.5 G, 1X/DAY
     Route: 048
     Dates: start: 20111119
  18. NEOPHAGEN [Concomitant]
     Indication: HEPATIC CIRRHOSIS
     Dosage: 80 ML, 1X/DAY
     Dates: start: 20040129

REACTIONS (3)
  - Erythema [Recovering/Resolving]
  - Purpura [Recovering/Resolving]
  - Skin ulcer [Recovering/Resolving]
